FAERS Safety Report 15550851 (Version 2)
Quarter: 2018Q4

REPORT INFORMATION
  Report Type: Spontaneous
  Country: CN (occurrence: CN)
  Receive Date: 20181025
  Receipt Date: 20181025
  Transmission Date: 20190205
  Serious: Yes (Other)
  Sender: FDA-Public Use
  Company Number: PHHY2018CN134159

PATIENT

DRUGS (3)
  1. CARBAMAZEPINE. [Suspect]
     Active Substance: CARBAMAZEPINE
     Indication: EPILEPSY
     Route: 065
  2. METHYLPREDNISOLONE. [Interacting]
     Active Substance: METHYLPREDNISOLONE
     Indication: INFLAMMATION
     Dosage: 40 MG, QD
     Route: 041
  3. METHYLPREDNISOLONE. [Interacting]
     Active Substance: METHYLPREDNISOLONE
     Indication: ASTHMA

REACTIONS (6)
  - Lung infection [Unknown]
  - Drug interaction [Unknown]
  - Cough [Unknown]
  - Muscle twitching [Unknown]
  - Dyspnoea [Unknown]
  - Pyrexia [Unknown]
